FAERS Safety Report 7476241-6 (Version None)
Quarter: 2011Q2

REPORT INFORMATION
  Report Type: 
  Country: None (occurrence: None)
  Receive Date: 20110512
  Receipt Date: 20110222
  Transmission Date: 20111010
  Serious: Yes (Death)
  Sender: FDA-Public Use
  Company Number: PHHY2011CZ15692

PATIENT
  Sex: Female

DRUGS (1)
  1. ZOMETA [Suspect]
     Dosage: UNK
     Dates: start: 20080630

REACTIONS (4)
  - DEATH [None]
  - DIZZINESS [None]
  - DRY MOUTH [None]
  - ABDOMINAL PAIN [None]
